FAERS Safety Report 9531590 (Version 2)
Quarter: 2013Q3

REPORT INFORMATION
  Report Type: Spontaneous
  Country: BR (occurrence: BR)
  Receive Date: 20130918
  Receipt Date: 20130918
  Transmission Date: 20140515
  Serious: Yes (Other)
  Sender: FDA-Public Use
  Company Number: BR-SHIRE-ALL1-2013-03522

PATIENT
  Sex: Male

DRUGS (2)
  1. VENVANSE [Suspect]
     Indication: ATTENTION DEFICIT/HYPERACTIVITY DISORDER
     Dosage: 30 MG, UNKNOWN
     Route: 048
     Dates: start: 20120312, end: 2012
  2. VENVANSE [Suspect]
     Dosage: 50 MG, UNKNOWN
     Route: 048
     Dates: start: 2012

REACTIONS (2)
  - Livedo reticularis [Unknown]
  - Drug ineffective [Unknown]
